FAERS Safety Report 5496579-1 (Version None)
Quarter: 2007Q4

REPORT INFORMATION
  Report Type: 
  Country: None (occurrence: None)
  Receive Date: 20071025
  Receipt Date: 20070712
  Transmission Date: 20080405
  Serious: No
  Sender: FDA-Public Use
  Company Number: A0658959A

PATIENT
  Age: 56 Year
  Sex: Female
  Weight: 64.5 kg

DRUGS (1)
  1. ADVAIR DISKUS 100/50 [Suspect]
     Indication: ASTHMA
     Dosage: 1PUFF TWICE PER DAY
     Route: 055

REACTIONS (3)
  - FUNGAL INFECTION [None]
  - GLOSSODYNIA [None]
  - SKIN ULCER [None]
